FAERS Safety Report 9514743 (Version 1)
Quarter: 2013Q3

REPORT INFORMATION
  Report Type: Spontaneous
  Country: NL (occurrence: NL)
  Receive Date: 20130911
  Receipt Date: 20130911
  Transmission Date: 20140515
  Serious: Yes (Hospitalization)
  Sender: FDA-Public Use
  Company Number: NL-EMCURE-000716

PATIENT
  Age: 41 Year
  Sex: Male

DRUGS (9)
  1. CARMUSTINE [Suspect]
     Indication: MALIGNANT LYMPHOID NEOPLASM
     Route: 065
  2. RITUXIMAB [Suspect]
     Indication: MALIGNANT LYMPHOID NEOPLASM
     Route: 042
     Dates: start: 20121025, end: 20121025
  3. METHOTREXATE [Suspect]
     Indication: MALIGNANT LYMPHOID NEOPLASM
     Route: 042
     Dates: start: 20121026, end: 20121026
  4. PREDNISOLONE [Suspect]
     Indication: MALIGNANT LYMPHOID NEOPLASM
     Route: 048
     Dates: start: 20121026, end: 20121027
  5. TENIPOSIDE [Suspect]
     Indication: MALIGNANT LYMPHOID NEOPLASM
     Route: 042
     Dates: start: 20121027, end: 20121027
  6. VALACICLOVIR [Concomitant]
     Indication: ANTIVIRAL PROPHYLAXIS
     Route: 048
     Dates: start: 20121024, end: 20121027
  7. LEUCOVORIN [Concomitant]
     Route: 042
     Dates: start: 20121027, end: 20121027
  8. CIPROFLOXACINE [Concomitant]
     Route: 048
     Dates: start: 20121024, end: 20121027
  9. FLUCONAZOLE [Concomitant]
     Route: 048
     Dates: start: 20121024, end: 20121027

REACTIONS (1)
  - Renal failure acute [Recovered/Resolved]
